FAERS Safety Report 10188326 (Version 1)
Quarter: 2014Q2

REPORT INFORMATION
  Report Type: Spontaneous
  Country: US (occurrence: None)
  Receive Date: 20140521
  Receipt Date: 20140521
  Transmission Date: 20141212
  Serious: Yes (Disabling)
  Sender: FDA-Public Use
  Company Number: None

PATIENT
  Age: 33 Year
  Sex: Female
  Weight: 94.8 kg

DRUGS (2)
  1. DIETARY SUPPLEMENT [Suspect]
     Indication: INFLAMMATION
     Dosage: 1 PILL
     Route: 048
     Dates: start: 20140430, end: 20140506
  2. DIETARY SUPPLEMENT [Suspect]
     Indication: ARTHRITIS
     Dosage: 1 PILL
     Route: 048
     Dates: start: 20140430, end: 20140506

REACTIONS (5)
  - Headache [None]
  - Diarrhoea [None]
  - Feeling abnormal [None]
  - Fatigue [None]
  - Mental impairment [None]
